FAERS Safety Report 7829353-9 (Version None)
Quarter: 2011Q4

REPORT INFORMATION
  Report Type: 
  Country: None (occurrence: None)
  Receive Date: 20111020
  Receipt Date: 20111019
  Transmission Date: 20120403
  Serious: Yes (Hospitalization, Other)
  Sender: FDA-Public Use
  Company Number: FI-PFIZER INC-2007042857

PATIENT
  Age: 64 Year
  Sex: Male

DRUGS (2)
  1. LIPITOR [Suspect]
     Dosage: EVERY DAY
     Route: 048
     Dates: start: 19960101, end: 20060901
  2. LISIPRIL [Concomitant]

REACTIONS (23)
  - RENAL DISORDER [None]
  - BODY TEMPERATURE INCREASED [None]
  - RHINITIS [None]
  - HYPONATRAEMIA [None]
  - VERTIGO [None]
  - VISUAL ACUITY REDUCED [None]
  - MEMORY IMPAIRMENT [None]
  - WEIGHT INCREASED [None]
  - PANCREATITIS RELAPSING [None]
  - BLOOD AMYLASE INCREASED [None]
  - BACK PAIN [None]
  - MUCOSAL INFLAMMATION [None]
  - PANCREATITIS [None]
  - NAUSEA [None]
  - DEPRESSION [None]
  - FATIGUE [None]
  - PAIN [None]
  - ABDOMINAL PAIN UPPER [None]
  - HOSPITALISATION [None]
  - SLEEP DISORDER [None]
  - SINUSITIS [None]
  - MYALGIA [None]
  - C-REACTIVE PROTEIN INCREASED [None]
